FAERS Safety Report 13145485 (Version 1)
Quarter: 2017Q1

REPORT INFORMATION
  Report Type: Spontaneous
  Country: US (occurrence: US)
  Receive Date: 20170124
  Receipt Date: 20170124
  Transmission Date: 20170428
  Serious: No
  Sender: FDA-Public Use
  Company Number: US-MYLANLABS-2016M1011999

PATIENT
  Sex: Female
  Weight: 73.92 kg

DRUGS (2)
  1. LETROZOLE. [Suspect]
     Active Substance: LETROZOLE
     Dosage: 2.5 MG, QD
     Route: 048
     Dates: start: 20130805
  2. OXYCODONE [Concomitant]
     Active Substance: OXYCODONE
     Dosage: 5 MG, PRN
     Route: 048
     Dates: start: 20130826

REACTIONS (4)
  - Arthralgia [Unknown]
  - Dyspnoea [Unknown]
  - Cough [Unknown]
  - Myalgia [Unknown]

NARRATIVE: CASE EVENT DATE: 2013
